FAERS Safety Report 12528042 (Version 3)
Quarter: 2016Q3

REPORT INFORMATION
  Report Type: Spontaneous
  Country: US (occurrence: US)
  Receive Date: 20160705
  Receipt Date: 20160727
  Transmission Date: 20161109
  Serious: No
  Sender: FDA-Public Use
  Company Number: US-LEO PHARMA-242918

PATIENT
  Sex: Female

DRUGS (4)
  1. TGEL SHAMPOO [Concomitant]
     Indication: PRODUCT USED FOR UNKNOWN INDICATION
  2. DAIVOBET [Suspect]
     Active Substance: BETAMETHASONE DIPROPIONATE\CALCIPOTRIENE
     Indication: PSORIASIS
     Dates: start: 20160505, end: 20160623
  3. LIDEX SOLUTION [Concomitant]
     Indication: PSORIASIS
     Dates: start: 20160714
  4. DAIVOBET [Suspect]
     Active Substance: BETAMETHASONE DIPROPIONATE\CALCIPOTRIENE
     Dates: start: 20160714

REACTIONS (4)
  - Application site pain [Recovering/Resolving]
  - Skin irritation [Recovering/Resolving]
  - Dermatitis [Recovering/Resolving]
  - Application site pain [Not Recovered/Not Resolved]
